FAERS Safety Report 15688180 (Version 1)
Quarter: 2018Q4

REPORT INFORMATION
  Report Type: Spontaneous
  Country: CH (occurrence: CH)
  Receive Date: 20181205
  Receipt Date: 20181205
  Transmission Date: 20190205
  Serious: Yes (Other)
  Sender: FDA-Public Use
  Company Number: CH-ROCHE-2221599

PATIENT
  Sex: Male

DRUGS (4)
  1. AVASTIN [Suspect]
     Active Substance: BEVACIZUMAB
     Indication: LUNG NEOPLASM MALIGNANT
     Route: 042
  2. TECENTRIQ [Suspect]
     Active Substance: ATEZOLIZUMAB
     Indication: LUNG NEOPLASM MALIGNANT
     Route: 042
  3. TAXOL [Concomitant]
     Active Substance: PACLITAXEL
     Indication: LUNG NEOPLASM MALIGNANT
     Route: 065
  4. CARBOPLATIN. [Concomitant]
     Active Substance: CARBOPLATIN
     Indication: LUNG NEOPLASM MALIGNANT
     Route: 065

REACTIONS (1)
  - Lung neoplasm malignant [Not Recovered/Not Resolved]
